APPROVED DRUG PRODUCT: AMPHETAMINE SULFATE
Active Ingredient: AMPHETAMINE SULFATE
Strength: 10MG
Dosage Form/Route: TABLET;ORAL
Application: A213980 | Product #002 | TE Code: AA
Applicant: EPIC PHARMA LLC
Approved: Oct 27, 2020 | RLD: No | RS: No | Type: RX